FAERS Safety Report 21072729 (Version 1)
Quarter: 2022Q3

REPORT INFORMATION
  Report Type: Spontaneous
  Country: US (occurrence: US)
  Receive Date: 20220712
  Receipt Date: 20220712
  Transmission Date: 20221027
  Serious: No
  Sender: FDA-Public Use
  Company Number: US-NOVARTISTESTPH-NVSC2022US157321

PATIENT

DRUGS (1)
  1. PIQRAY [Suspect]
     Active Substance: ALPELISIB
     Indication: Hormone receptor negative HER2 positive breast cancer
     Dosage: UNK
     Route: 065

REACTIONS (2)
  - PIK3CA-activated mutation [Unknown]
  - Drug ineffective [Unknown]
